FAERS Safety Report 8380610-X (Version None)
Quarter: 2012Q2

REPORT INFORMATION
  Report Type: 
  Country: None (occurrence: None)
  Receive Date: 20120523
  Receipt Date: 20120514
  Transmission Date: 20120825
  Serious: Yes (Hospitalization, Other)
  Sender: FDA-Public Use
  Company Number: US-ACTELION-A-US2012-63404

PATIENT

DRUGS (2)
  1. TRACLEER [Suspect]
     Indication: PULMONARY ARTERIAL HYPERTENSION
     Dosage: UNK MG, UNK
     Route: 048
     Dates: start: 20111205
  2. ASPIRIN [Concomitant]

REACTIONS (5)
  - ANGIOPLASTY [None]
  - CORONARY ARTERIAL STENT INSERTION [None]
  - PALLOR [None]
  - CORONARY ARTERY DISEASE [None]
  - DYSPNOEA [None]
